FAERS Safety Report 19727594 (Version 1)
Quarter: 2021Q3

REPORT INFORMATION
  Report Type: Spontaneous
  Country: US (occurrence: US)
  Receive Date: 20210820
  Receipt Date: 20210820
  Transmission Date: 20211014
  Serious: Yes (Death, Hospitalization, Other)
  Sender: FDA-Public Use
  Company Number: US-MYLANLABS-2021M1051796

PATIENT
  Age: 83 Year
  Sex: Male
  Weight: 130 kg

DRUGS (10)
  1. VALSARTAN TABLETS, USP [Suspect]
     Active Substance: VALSARTAN
     Indication: HYPERTENSION
     Dosage: 320 MILLIGRAM
     Dates: start: 20180723, end: 20181021
  2. VITAMIN C [Concomitant]
     Active Substance: ASCORBIC ACID
     Dosage: 1000 MILLIGRAM, QD
     Dates: start: 2000, end: 20191104
  3. SIMVASTATIN. [Concomitant]
     Active Substance: SIMVASTATIN
     Indication: BLOOD CHOLESTEROL INCREASED
     Dosage: UNK
  4. CINNAMON                           /01647501/ [Concomitant]
     Active Substance: CINNAMON\HERBALS
     Dosage: UNK, QD
     Dates: start: 2018, end: 2019
  5. ASPIRIN                            /00002701/ [Concomitant]
     Active Substance: ASPIRIN
     Indication: CORONARY ARTERY DISEASE
     Dosage: UNK
  6. VITAMIN D                          /00107901/ [Concomitant]
     Active Substance: ERGOCALCIFEROL
     Dosage: 500 INTERNATIONAL UNIT, QD
     Dates: start: 2001, end: 20191104
  7. CENTRUM MEN [Concomitant]
     Active Substance: MINERALS\VITAMINS
     Dosage: 600 MILLIGRAM, QD
     Dates: start: 2001, end: 20191104
  8. VITAMIN B12 [Concomitant]
     Active Substance: CYANOCOBALAMIN
     Dosage: UNK, QD
     Dates: start: 2017, end: 20191104
  9. INSULIN [Concomitant]
     Active Substance: INSULIN NOS
     Indication: DIABETES MELLITUS
     Dosage: UNK
  10. METOPROLOL. [Concomitant]
     Active Substance: METOPROLOL
     Indication: HYPERTENSION
     Dosage: UNK

REACTIONS (9)
  - Acute myeloid leukaemia [Fatal]
  - Microcytic anaemia [Unknown]
  - Dyspnoea exertional [Unknown]
  - Pancytopenia [Unknown]
  - Cardio-respiratory arrest [Fatal]
  - Febrile neutropenia [Unknown]
  - Sepsis [Fatal]
  - Pneumonia [Fatal]
  - Pancreatitis [Unknown]

NARRATIVE: CASE EVENT DATE: 2019
